FAERS Safety Report 12469531 (Version 1)
Quarter: 2016Q2

REPORT INFORMATION
  Report Type: Spontaneous
  Country: US (occurrence: US)
  Receive Date: 20160615
  Receipt Date: 20160615
  Transmission Date: 20160815
  Serious: No
  Sender: FDA-Public Use
  Company Number: US-GALDERMA-US16002334

PATIENT
  Age: 38 Year
  Sex: Female
  Weight: 80 kg

DRUGS (3)
  1. MIRVASO [Suspect]
     Active Substance: BRIMONIDINE TARTRATE
     Indication: ROSACEA
     Dosage: 0.33%
     Route: 061
     Dates: start: 201503, end: 20160323
  2. AZELAIC ACID. [Concomitant]
     Active Substance: AZELAIC ACID
     Dosage: 15.1
     Route: 061
     Dates: start: 201403
  3. MIRENA [Concomitant]
     Active Substance: LEVONORGESTREL
     Route: 019
     Dates: start: 201311

REACTIONS (5)
  - Chemical burn of skin [Recovered/Resolved]
  - Erythema [Recovered/Resolved]
  - Headache [Recovered/Resolved]
  - Skin warm [Recovered/Resolved]
  - Flushing [Recovered/Resolved]

NARRATIVE: CASE EVENT DATE: 201603
